FAERS Safety Report 7198903-0 (Version None)
Quarter: 2010Q4

REPORT INFORMATION
  Report Type: 
  Country: None (occurrence: None)
  Receive Date: 20101227
  Receipt Date: 20101220
  Transmission Date: 20110411
  Serious: Yes (Hospitalization)
  Sender: FDA-Public Use
  Company Number: US-RB-019577-10

PATIENT
  Age: 45 Year
  Sex: Male

DRUGS (1)
  1. SUBOXONE [Suspect]
     Indication: PRODUCT USED FOR UNKNOWN INDICATION
     Dosage: DOSING INFORMATION UNKNOWN-SUBLINGUAL FILM
     Route: 065
     Dates: start: 20100101, end: 20100101

REACTIONS (10)
  - ANGER [None]
  - CHILLS [None]
  - CONVULSION [None]
  - DISORIENTATION [None]
  - DRUG WITHDRAWAL SYNDROME [None]
  - HYPERHIDROSIS [None]
  - MOBILITY DECREASED [None]
  - PYREXIA [None]
  - TREMOR [None]
  - VOMITING [None]
